FAERS Safety Report 24986717 (Version 1)
Quarter: 2025Q1

REPORT INFORMATION
  Report Type: Spontaneous
  Country: CA (occurrence: CA)
  Receive Date: 20250219
  Receipt Date: 20250219
  Transmission Date: 20250409
  Serious: Yes (Other)
  Sender: ANI
  Company Number: CA-ANIPHARMA-2025-CA-000569

PATIENT
  Sex: Female

DRUGS (8)
  1. BOTOX [Suspect]
     Active Substance: ONABOTULINUMTOXINA
     Indication: Product used for unknown indication
     Route: 030
  2. CELEBREX [Suspect]
     Active Substance: CELECOXIB
  3. MAXALT [Suspect]
     Active Substance: RIZATRIPTAN BENZOATE
  4. UBRELVY [Suspect]
     Active Substance: UBROGEPANT
     Route: 048
  5. ATACAND [Concomitant]
     Active Substance: CANDESARTAN CILEXETIL
  6. GRANISETRON HYDROCHLORIDE [Concomitant]
     Active Substance: GRANISETRON HYDROCHLORIDE
  7. ONDANSETRON HYDROCHLORIDE [Concomitant]
     Active Substance: ONDANSETRON HYDROCHLORIDE
  8. ARIMIDEX [Suspect]
     Active Substance: ANASTROZOLE
     Indication: Product used for unknown indication

REACTIONS (5)
  - Adverse drug reaction [Unknown]
  - Bone pain [Unknown]
  - Breast cancer female [Unknown]
  - Myalgia [Unknown]
  - Pruritus [Unknown]
